FAERS Safety Report 14239090 (Version 2)
Quarter: 2017Q4

REPORT INFORMATION
  Report Type: Spontaneous
  Country: JP (occurrence: JP)
  Receive Date: 20171130
  Receipt Date: 20171207
  Transmission Date: 20180321
  Serious: Yes (Other)
  Sender: FDA-Public Use
  Company Number: JP-ROCHE-2028441

PATIENT
  Age: 8 Decade
  Sex: Female

DRUGS (2)
  1. ALECENSA [Suspect]
     Active Substance: ALECTINIB HYDROCHLORIDE
     Indication: NON-SMALL CELL LUNG CANCER
     Route: 048
  2. VIVIANT [Concomitant]
     Active Substance: BAZEDOXIFENE
     Route: 048
     Dates: end: 2017

REACTIONS (3)
  - Fracture [Unknown]
  - Bone metabolism biochemical marker increased [Unknown]
  - Fall [Unknown]

NARRATIVE: CASE EVENT DATE: 201705
